FAERS Safety Report 14936645 (Version 1)
Quarter: 2018Q2

REPORT INFORMATION
  Report Type: Spontaneous
  Country: ES (occurrence: ES)
  Receive Date: 20180525
  Receipt Date: 20180525
  Transmission Date: 20180711
  Serious: Yes (Other)
  Sender: FDA-Public Use
  Company Number: ES-ABBVIE-18K-144-2291917-00

PATIENT
  Age: 43 Year
  Sex: Female
  Weight: 62 kg

DRUGS (2)
  1. HUMIRA [Suspect]
     Active Substance: ADALIMUMAB
     Route: 058
     Dates: start: 201803
  2. HUMIRA [Suspect]
     Active Substance: ADALIMUMAB
     Indication: SPONDYLOARTHROPATHY
     Route: 058
     Dates: start: 20171110, end: 2018

REACTIONS (7)
  - Influenza [Recovered/Resolved]
  - Oral pain [Unknown]
  - Respiratory tract infection [Recovered/Resolved]
  - Dental implantation [Unknown]
  - Dry mouth [Unknown]
  - Oral lichen planus [Recovering/Resolving]
  - Blepharitis [Recovered/Resolved]

NARRATIVE: CASE EVENT DATE: 2018
